FAERS Safety Report 8104698-6 (Version None)
Quarter: 2012Q1

REPORT INFORMATION
  Report Type: 
  Country: None (occurrence: None)
  Receive Date: 20120201
  Receipt Date: 20120130
  Transmission Date: 20120608
  Serious: Yes (Other)
  Sender: FDA-Public Use
  Company Number: US-PFIZER INC-2011306847

PATIENT
  Sex: Male
  Weight: 74.83 kg

DRUGS (3)
  1. LITHIUM [Concomitant]
     Indication: BIPOLAR DISORDER
     Dosage: UNK
     Dates: start: 20060101
  2. GEODON [Suspect]
     Indication: BIPOLAR DISORDER
     Dosage: 20 MG, 1X/DAY
     Route: 048
     Dates: start: 20111212
  3. PAXIL [Concomitant]
     Indication: DEPRESSION
     Dosage: UNK
     Dates: start: 19960101

REACTIONS (7)
  - ANXIETY [None]
  - SPEECH DISORDER [None]
  - CRYING [None]
  - FEELING JITTERY [None]
  - FEELING ABNORMAL [None]
  - PANIC ATTACK [None]
  - PARAESTHESIA [None]
